FAERS Safety Report 8839684 (Version 1)
Quarter: 2012Q4

REPORT INFORMATION
  Report Type: Spontaneous
  Country: NL (occurrence: None)
  Receive Date: 20121011
  Receipt Date: 20121011
  Transmission Date: 20130627
  Serious: Yes (Other)
  Sender: FDA-Public Use
  Company Number: LORA20120003

PATIENT
  Age: 50 Year
  Sex: Female

DRUGS (10)
  1. LORAZEPAM [Suspect]
     Indication: ANXIETY
     Route: 048
     Dates: start: 2012, end: 2012
  2. CITALOPRAM (CITALOPRAM) [Concomitant]
  3. IMIPRAMINE (IMIPRAMINE) [Concomitant]
  4. TRIFLUOPERAZINE (TRIFLUOPERAZINE) [Concomitant]
  5. DIGOXIN (DIGOXIN) [Concomitant]
  6. FUROSEMIDE (FUROSEMIDE) [Concomitant]
  7. METFORMIN (METFORMIN) [Concomitant]
  8. POTASSIUM CHLORIDE (POTASSIUM CHLORIDE) [Concomitant]
  9. NIACIN (NICOTINIC ACID) [Concomitant]
  10. MULTIVITAMINS (ERGOCALCIFEROL, ASCORBIC ACID, FOLIC ACID, THIAMINE HYDROCHLORIDE, RETINOL, RIBOFLAVIN, NICOTINAMIDE, PANTHENOL) [Concomitant]

REACTIONS (6)
  - Aortic stenosis [None]
  - Postoperative fever [None]
  - Tachycardia [None]
  - Catatonia [None]
  - Immobile [None]
  - Drug withdrawal syndrome [None]
